FAERS Safety Report 26091573 (Version 1)
Quarter: 2025Q4

REPORT INFORMATION
  Report Type: Spontaneous
  Country: TR (occurrence: TR)
  Receive Date: 20251126
  Receipt Date: 20251126
  Transmission Date: 20260117
  Serious: Yes (Other)
  Sender: SANDOZ
  Company Number: TR-002147023-NVSC2025TR179253

PATIENT

DRUGS (1)
  1. RITALIN [Suspect]
     Active Substance: METHYLPHENIDATE HYDROCHLORIDE
     Indication: Product used for unknown indication
     Route: 065

REACTIONS (1)
  - Feeling abnormal [Unknown]
